FAERS Safety Report 21638610 (Version 2)
Quarter: 2023Q1

REPORT INFORMATION
  Report Type: Spontaneous
  Country: US (occurrence: US)
  Receive Date: 20221124
  Receipt Date: 20230221
  Transmission Date: 20230417
  Serious: Yes (Death, Other)
  Sender: FDA-Public Use
  Company Number: US-BRISTOL-MYERS SQUIBB COMPANY-2022-142971

PATIENT
  Age: 40 Year
  Sex: Female

DRUGS (2)
  1. OPDIVO [Suspect]
     Active Substance: NIVOLUMAB
     Indication: Malignant connective tissue neoplasm
     Dosage: FREQ : EVERY 3 WEEKS
  2. YERVOY [Suspect]
     Active Substance: IPILIMUMAB
     Indication: Malignant connective tissue neoplasm
     Dosage: FREQ : EVERY 3 WEEKS

REACTIONS (2)
  - Death [Fatal]
  - Off label use [Unknown]
